FAERS Safety Report 14665278 (Version 7)
Quarter: 2018Q4

REPORT INFORMATION
  Report Type: Spontaneous
  Country: CA (occurrence: CA)
  Receive Date: 20180321
  Receipt Date: 20181219
  Transmission Date: 20190204
  Serious: Yes (Other)
  Sender: FDA-Public Use
  Company Number: CA-CELLTRION INC.-2018CA017745

PATIENT

DRUGS (8)
  1. INFLECTRA [Suspect]
     Active Substance: INFLIXIMAB-DYYB
     Dosage: 450 MG, CYCLIC (EVERY 0, 2,6 WEEKS AND THEN EVERY 8 WEEKS)
     Route: 042
     Dates: start: 20180626
  2. INFLECTRA [Suspect]
     Active Substance: INFLIXIMAB-DYYB
     Dosage: 450 MG, CYCLIC (EVERY 0, 2,6 WEEKS AND THEN EVERY 8 WEEKS)
     Route: 042
     Dates: start: 20181017
  3. INFLECTRA [Suspect]
     Active Substance: INFLIXIMAB-DYYB
     Dosage: 450 MG, CYCLIC, EVERY 7 WEEKS
     Route: 042
     Dates: start: 20181205
  4. INFLECTRA [Suspect]
     Active Substance: INFLIXIMAB-DYYB
     Indication: COLITIS ULCERATIVE
     Dosage: 450 MG, CYCLIC (EVERY 0, 2,6 WEEKS AND THEN EVERY 8 WEEKS)
     Route: 042
     Dates: start: 20180123
  5. INFLECTRA [Suspect]
     Active Substance: INFLIXIMAB-DYYB
     Dosage: 450 MG, CYCLIC (EVERY 0, 2,6 WEEKS AND THEN EVERY 8 WEEKS)
     Route: 042
     Dates: start: 20180308
  6. INFLECTRA [Suspect]
     Active Substance: INFLIXIMAB-DYYB
     Dosage: 450 MG, CYCLIC (EVERY 0, 2,6 WEEKS AND THEN EVERY 8 WEEKS)
     Route: 042
     Dates: start: 20180821
  7. INFLECTRA [Suspect]
     Active Substance: INFLIXIMAB-DYYB
     Indication: RHEUMATOID ARTHRITIS
     Dosage: 450 MG, CYCLIC (EVERY 0, 2,6 WEEKS AND THEN EVERY 8 WEEKS)
     Route: 042
     Dates: start: 20180208
  8. METHOTREXATE. [Concomitant]
     Active Substance: METHOTREXATE
     Indication: RHEUMATOID ARTHRITIS
     Dosage: UNK
     Dates: start: 1988

REACTIONS (8)
  - Drug effect incomplete [Not Recovered/Not Resolved]
  - Rectal haemorrhage [Not Recovered/Not Resolved]
  - Malaise [Unknown]
  - Blood pressure fluctuation [Unknown]
  - Hypertension [Not Recovered/Not Resolved]
  - Condition aggravated [Unknown]
  - Fatigue [Not Recovered/Not Resolved]
  - Nausea [Recovered/Resolved]

NARRATIVE: CASE EVENT DATE: 201801
